FAERS Safety Report 18633693 (Version 2)
Quarter: 2020Q4

REPORT INFORMATION
  Report Type: Report from Study
  Country: US (occurrence: US)
  Receive Date: 20201218
  Receipt Date: 20201218
  Transmission Date: 20210114
  Serious: Yes (Death, Other)
  Sender: FDA-Public Use
  Company Number: US-PFIZER INC-2020495267

PATIENT

DRUGS (1)
  1. HEPARIN SODIUM. [Suspect]
     Active Substance: HEPARIN SODIUM
     Indication: PLATELET AGGREGATION INCREASED
     Dosage: UNK

REACTIONS (4)
  - Heparin-induced thrombocytopenia [Fatal]
  - Multiple organ dysfunction syndrome [Fatal]
  - Arteriovenous graft thrombosis [Fatal]
  - Cerebellar infarction [Fatal]
